FAERS Safety Report 17167903 (Version 1)
Quarter: 2019Q4

REPORT INFORMATION
  Report Type: Spontaneous
  Country: US (occurrence: US)
  Receive Date: 20191218
  Receipt Date: 20191218
  Transmission Date: 20200122
  Serious: Yes (Hospitalization)
  Sender: FDA-Public Use
  Company Number: US-APOTEX-2019AP026145

PATIENT
  Age: 23 Month
  Sex: Female

DRUGS (1)
  1. FENTANYL. [Suspect]
     Active Substance: FENTANYL
     Indication: PRODUCT USED FOR UNKNOWN INDICATION
     Dosage: UNK
     Route: 065

REACTIONS (8)
  - Somnolence [Unknown]
  - Drug screen positive [Unknown]
  - Gait disturbance [Unknown]
  - Feeling abnormal [Unknown]
  - Respiratory acidosis [Unknown]
  - Respiratory rate decreased [Unknown]
  - Product use issue [Unknown]
  - Accidental exposure to product by child [Unknown]
